FAERS Safety Report 12943377 (Version 39)
Quarter: 2025Q1

REPORT INFORMATION
  Report Type: Report from Study
  Country: BR (occurrence: BR)
  Receive Date: 20161115
  Receipt Date: 20250214
  Transmission Date: 20250409
  Serious: Yes (Hospitalization, Other)
  Sender: GLAXOSMITHKLINE
  Company Number: BR-GLAXOSMITHKLINE INC.-BR2015GSK075816

PATIENT

DRUGS (11)
  1. BELIMUMAB [Suspect]
     Active Substance: BELIMUMAB
     Indication: Systemic lupus erythematosus
     Dosage: 600 MG, Q4W
     Route: 042
     Dates: start: 20150527
  2. CELEBRA [Suspect]
     Active Substance: CELECOXIB
     Indication: Systemic lupus erythematosus
     Dates: start: 20220421, end: 20220426
  3. KETOPROFEN [Suspect]
     Active Substance: KETOPROFEN
     Indication: Product used for unknown indication
     Dosage: UNK, TID
  4. COVID-19 VACCINE NOS [Suspect]
     Active Substance: COVID-19 VACCINE
     Indication: Prophylaxis
  5. IBUPROFEN [Concomitant]
     Active Substance: IBUPROFEN
     Indication: Product used for unknown indication
  6. PREDNISONE [Concomitant]
     Active Substance: PREDNISONE
     Indication: Product used for unknown indication
  7. PREDNISONE [Concomitant]
     Active Substance: PREDNISONE
     Dosage: 4 MG, QD
  8. AZATHIOPRINE [Concomitant]
     Active Substance: AZATHIOPRINE
     Indication: Product used for unknown indication
  9. HYDROXYCHLOROQUINE [Concomitant]
     Active Substance: HYDROXYCHLOROQUINE
     Indication: Product used for unknown indication
  10. AZITHROMYCIN [Concomitant]
     Active Substance: AZITHROMYCIN
     Indication: Pharyngitis
  11. HEXAMIDINE DIISETHIONATE [Concomitant]
     Active Substance: HEXAMIDINE DIISETHIONATE
     Indication: Pharyngitis

REACTIONS (55)
  - Pneumonia [Recovered/Resolved]
  - Kidney infection [Unknown]
  - Bacterial diarrhoea [Recovered/Resolved]
  - Immunodeficiency [Recovered/Resolved]
  - Palpitations [Recovered/Resolved]
  - Muscular weakness [Recovered/Resolved]
  - Laboratory test abnormal [Recovered/Resolved]
  - Respiratory disorder [Recovered/Resolved]
  - Lung disorder [Unknown]
  - Tracheitis [Recovered/Resolved]
  - Diarrhoea [Recovered/Resolved]
  - Weight decreased [Recovered/Resolved]
  - Nasopharyngitis [Recovered/Resolved]
  - Fatigue [Recovered/Resolved]
  - Nausea [Recovered/Resolved]
  - Tooth fracture [Recovered/Resolved]
  - Tooth extraction [Recovered/Resolved]
  - Inflammation [Recovered/Resolved]
  - Dental implantation [Unknown]
  - Tooth disorder [Unknown]
  - Infection [Unknown]
  - Tendonitis [Recovered/Resolved]
  - Joint swelling [Unknown]
  - Arthritis [Unknown]
  - COVID-19 [Unknown]
  - Application site pain [Unknown]
  - Influenza [Recovered/Resolved]
  - Rhinorrhoea [Recovered/Resolved]
  - Sneezing [Recovered/Resolved]
  - Pain [Recovered/Resolved]
  - Allergic cough [Recovered/Resolved]
  - Urinary tract infection [Recovered/Resolved]
  - Pyrexia [Recovered/Resolved]
  - Social problem [Unknown]
  - Myalgia [Unknown]
  - Pharyngitis [Unknown]
  - Back pain [Recovered/Resolved]
  - Cough [Recovered/Resolved]
  - Patient isolation [Unknown]
  - Pharyngitis [Not Recovered/Not Resolved]
  - Cough [Not Recovered/Not Resolved]
  - Dysphonia [Not Recovered/Not Resolved]
  - Nocturnal dyspnoea [Not Recovered/Not Resolved]
  - Pharyngeal inflammation [Unknown]
  - Respiratory tract congestion [Not Recovered/Not Resolved]
  - Rhinorrhoea [Not Recovered/Not Resolved]
  - Skin discolouration [Unknown]
  - Otitis externa [Unknown]
  - Carpal tunnel syndrome [Recovered/Resolved]
  - Therapeutic response unexpected [Unknown]
  - Underdose [Unknown]
  - Overdose [Unknown]
  - Circumstance or information capable of leading to medication error [Unknown]
  - Intentional dose omission [Unknown]
  - Inappropriate schedule of product administration [Unknown]

NARRATIVE: CASE EVENT DATE: 20220401
